FAERS Safety Report 23108667 (Version 1)
Quarter: 2023Q4

REPORT INFORMATION
  Report Type: Spontaneous
  Country: GB (occurrence: GB)
  Receive Date: 20231026
  Receipt Date: 20231026
  Transmission Date: 20240110
  Serious: Yes (Other)
  Sender: FDA-Public Use
  Company Number: None

PATIENT

DRUGS (7)
  1. IBUPROFEN [Suspect]
     Active Substance: IBUPROFEN
     Indication: Ill-defined disorder
     Dosage: UNK
     Route: 065
     Dates: start: 20230922
  2. CALCIUM CARBONATE [Concomitant]
     Active Substance: CALCIUM CARBONATE
     Dosage: TAKE ONE DAILY
     Dates: start: 20220804
  3. CALCIPOTRIENE [Concomitant]
     Active Substance: CALCIPOTRIENE
     Dosage: MIX WITH EFUDIX 1:1 USE TWICE DAILY FOR 10 DAYS
     Dates: start: 20230922, end: 20231002
  4. FLUOROURACIL [Concomitant]
     Active Substance: FLUOROURACIL
     Dosage: MIX WITH DOVONEX 1:1 TWICE A DAY FOR 20 DAYS
     Dates: start: 20230922, end: 20231002
  5. HYDROXYCHLOROQUINE SULFATE [Concomitant]
     Active Substance: HYDROXYCHLOROQUINE SULFATE
     Dosage: CONSULTANT INITIATION TAKE ONE TWICE A DAY
     Dates: start: 20220519
  6. DOVONEX [Concomitant]
     Active Substance: CALCIPOTRIENE
     Dosage: FLUOROURACIL MIX WITH DOVONEX 1:1 TWICE A DAY FOR 20 DAYS
     Dates: start: 20230922, end: 20231002
  7. FLUOROURACIL [Concomitant]
     Active Substance: FLUOROURACIL
     Dosage: CALCIPOTRIOL MIX WITH EFUDIX 1:1 USE TWICE DAILY FOR 10 DAYS
     Dates: start: 20230922, end: 20231002

REACTIONS (1)
  - Lip swelling [Recovered/Resolved]

NARRATIVE: CASE EVENT DATE: 20231006
